FAERS Safety Report 4486385-9 (Version None)
Quarter: 2004Q4

REPORT INFORMATION
  Report Type: 
  Country: None (occurrence: None)
  Receive Date: 20041026
  Receipt Date: 20041026
  Transmission Date: 20050328
  Serious: Yes (Death)
  Sender: FDA-Public Use
  Company Number: None

PATIENT
  Age: 57 Year
  Sex: Female
  Weight: 65.5 kg

DRUGS (2)
  1. VINORELBINE TARTRATE [Suspect]
     Indication: BREAST CANCER METASTATIC
     Dosage: 60 MG/M2   D1,8,15Q2 1D   ORAL
     Route: 048
     Dates: start: 20031103, end: 20031222
  2. CAPECITABINE    ROCHE LABORATORIES, INC [Suspect]
     Indication: BREAST CANCER METASTATIC
     Dosage: 2000 MG/M2   D1-14Q21D SYS   ORAL
     Route: 048
     Dates: start: 20031103, end: 20031229

REACTIONS (2)
  - DISEASE PROGRESSION [None]
  - HEPATIC FAILURE [None]
